FAERS Safety Report 8495658 (Version 2)
Quarter: 2012Q4

REPORT INFORMATION
  Report Type: 
  Country: GB (occurrence: GB)
  Receive Date: 20120405
  Receipt Date: 20121120
  Transmission Date: 20130627
  Serious: Yes (Death, Hospitalization)
  Sender: FDA-Public Use
  Company Number: PHHO2012GB005306

PATIENT
  Age: 55 Year
  Sex: Male

DRUGS (4)
  1. EVEROLIMUS [Suspect]
     Indication: ACUTE MYELOID LEUKAEMIA
     Dosage: 5 mg, UNK
     Dates: start: 20120227, end: 20120311
  2. EVEROLIMUS [Suspect]
     Dosage: 10 mg, UNK
     Dates: start: 20120312, end: 20120314
  3. ARA-C [Suspect]
     Dosage: UNK
     Dates: start: 20120217, end: 20120224
  4. DAUNORUBICIN [Suspect]
     Dosage: UNK
     Dates: start: 20120217, end: 20120224

REACTIONS (1)
  - Neutropenic sepsis [Fatal]
